FAERS Safety Report 10496966 (Version 1)
Quarter: 2014Q4

REPORT INFORMATION
  Report Type: Spontaneous
  Country: JP (occurrence: JP)
  Receive Date: 20141006
  Receipt Date: 20141006
  Transmission Date: 20150528
  Serious: Yes (Death)
  Sender: FDA-Public Use
  Company Number: JP-PFIZER INC-2014270560

PATIENT

DRUGS (1)
  1. TORISEL [Suspect]
     Active Substance: TEMSIROLIMUS
     Dosage: UNK
     Route: 041

REACTIONS (1)
  - Death [Fatal]
